FAERS Safety Report 18177636 (Version 1)
Quarter: 2020Q3

REPORT INFORMATION
  Report Type: Spontaneous
  Country: US (occurrence: US)
  Receive Date: 20200820
  Receipt Date: 20200820
  Transmission Date: 20201103
  Serious: Yes (Hospitalization)
  Sender: FDA-Public Use
  Company Number: US-MYLANLABS-2020M1072604

PATIENT
  Age: 7 Year
  Sex: Male

DRUGS (8)
  1. MILRINONE [Concomitant]
     Active Substance: MILRINONE
     Indication: CARDIAC FAILURE
     Dosage: INFUSION
  2. MAGNESIUM [Suspect]
     Active Substance: MAGNESIUM
     Indication: GITELMAN^S SYNDROME
     Dosage: ENTERAL INFUSION
  3. MAGNESIUM CHLORIDE. [Suspect]
     Active Substance: MAGNESIUM CHLORIDE
     Indication: GITELMAN^S SYNDROME
     Dosage: ENTERAL INFUSION
  4. TACROLIMUS. [Suspect]
     Active Substance: TACROLIMUS
     Indication: IMMUNOSUPPRESSANT DRUG THERAPY
     Dosage: UNK
     Route: 065
  5. DOBUTAMINE [Concomitant]
     Active Substance: DOBUTAMINE HYDROCHLORIDE
     Indication: CARDIAC FAILURE
     Dosage: INFUSION
  6. MAGNESIUM [Suspect]
     Active Substance: MAGNESIUM
     Dosage: DOSE INCREASED UP TO 73 MG/KG/DAY
  7. POTASSIUM [Concomitant]
     Active Substance: POTASSIUM
     Indication: GITELMAN^S SYNDROME
     Route: 065
  8. MAGNESIUM CHLORIDE. [Suspect]
     Active Substance: MAGNESIUM CHLORIDE
     Dosage: DOSE INCREASED UP TO 33 MG/KG/DAY

REACTIONS (8)
  - Muscle spasms [Recovering/Resolving]
  - Mobility decreased [Recovering/Resolving]
  - Ventricular tachycardia [Recovering/Resolving]
  - Metabolic acidosis [Recovering/Resolving]
  - Hypomagnesaemia [Recovering/Resolving]
  - Frequent bowel movements [Recovering/Resolving]
  - Condition aggravated [Recovering/Resolving]
  - Tetany [Recovering/Resolving]
